FAERS Safety Report 9152308 (Version 1)
Quarter: 2013Q1

REPORT INFORMATION
  Report Type: Spontaneous
  Country: US (occurrence: US)
  Receive Date: 20130308
  Receipt Date: 20130308
  Transmission Date: 20140127
  Serious: Yes (Hospitalization)
  Sender: FDA-Public Use
  Company Number: US-TEVA-390078USA

PATIENT
  Age: 48 Year
  Sex: Male

DRUGS (4)
  1. BUPROPION [Suspect]
     Indication: POLYDIPSIA PSYCHOGENIC
     Route: 065
     Dates: start: 2007
  2. BUPROPION [Interacting]
     Indication: POLYDIPSIA PSYCHOGENIC
     Dosage: XL 300MG QD
     Route: 048
     Dates: start: 2007
  3. CLONAZEPAM [Interacting]
     Indication: POLYDIPSIA PSYCHOGENIC
     Route: 065
  4. ZIPRASIDONE [Interacting]
     Indication: POLYDIPSIA PSYCHOGENIC
     Route: 065

REACTIONS (4)
  - Drug interaction [Recovered/Resolved]
  - Polydipsia psychogenic [Recovered/Resolved]
  - Drug ineffective [Unknown]
  - Somnolence [Unknown]
